FAERS Safety Report 18606176 (Version 1)
Quarter: 2020Q4

REPORT INFORMATION
  Report Type: Report from Study
  Country: US (occurrence: US)
  Receive Date: 20201211
  Receipt Date: 20201211
  Transmission Date: 20210114
  Serious: Yes (Hospitalization, Other)
  Sender: FDA-Public Use
  Company Number: US-BRISTOL-MYERS SQUIBB COMPANY-BMS-2020-102670

PATIENT
  Age: 5 Year
  Sex: Male
  Weight: 17.6 kg

DRUGS (5)
  1. VALTREX [Concomitant]
     Active Substance: VALACYCLOVIR HYDROCHLORIDE
     Indication: PRODUCT USED FOR UNKNOWN INDICATION
     Dosage: UNK
     Route: 065
     Dates: start: 20200921
  2. VORICONAZOLE. [Concomitant]
     Active Substance: VORICONAZOLE
     Indication: PRODUCT USED FOR UNKNOWN INDICATION
     Dosage: UNK
     Route: 065
     Dates: start: 20201109
  3. TACROLIMUS. [Concomitant]
     Active Substance: TACROLIMUS
     Indication: PRODUCT USED FOR UNKNOWN INDICATION
     Dosage: UNK
     Route: 065
     Dates: start: 20200831
  4. ABATACEPT [Suspect]
     Active Substance: ABATACEPT
     Indication: PROPHYLAXIS AGAINST GRAFT VERSUS HOST DISEASE
     Dosage: 175 MG, DAY -1, +5, +14
     Route: 065
     Dates: start: 20200823, end: 20201117
  5. BACTRIM [Concomitant]
     Active Substance: SULFAMETHOXAZOLE\TRIMETHOPRIM
     Indication: PRODUCT USED FOR UNKNOWN INDICATION
     Dosage: UNK
     Route: 065
     Dates: start: 20200919

REACTIONS (5)
  - Vomiting [Unknown]
  - Decreased appetite [Unknown]
  - Weight decreased [Unknown]
  - Epstein-Barr viraemia [Unknown]
  - Pyrexia [Unknown]

NARRATIVE: CASE EVENT DATE: 20201117
